FAERS Safety Report 6637401-7 (Version None)
Quarter: 2010Q1

REPORT INFORMATION
  Report Type: 
  Country: None (occurrence: None)
  Receive Date: 20100316
  Receipt Date: 20100311
  Transmission Date: 20100710
  Serious: Yes (Hospitalization)
  Sender: FDA-Public Use
  Company Number: JP-MERCK-1001USA03072

PATIENT
  Age: 86 Year
  Sex: Female

DRUGS (4)
  1. HYZAAR [Suspect]
     Indication: HYPERTENSION
     Route: 048
     Dates: start: 20100104, end: 20100118
  2. NORVASC [Concomitant]
     Indication: HYPERTENSION
     Route: 048
  3. TAKEPRON [Concomitant]
     Route: 048
     Dates: start: 20100104
  4. DIOVAN [Concomitant]
     Indication: HYPERTENSION
     Route: 048
     Dates: end: 20100104

REACTIONS (2)
  - C-REACTIVE PROTEIN INCREASED [None]
  - RENAL FAILURE ACUTE [None]
